FAERS Safety Report 10498852 (Version 1)
Quarter: 2014Q4

REPORT INFORMATION
  Report Type: Spontaneous
  Country: JP (occurrence: JP)
  Receive Date: 20141006
  Receipt Date: 20141006
  Transmission Date: 20150528
  Serious: Yes (Other)
  Sender: FDA-Public Use
  Company Number: JP-SA-2014SA135833

PATIENT
  Age: 15 Year
  Sex: Female

DRUGS (7)
  1. MYSLEE [Suspect]
     Active Substance: ZOLPIDEM TARTRATE
     Indication: INSOMNIA
     Route: 048
     Dates: start: 201409, end: 201409
  2. MYSLEE [Suspect]
     Active Substance: ZOLPIDEM TARTRATE
     Indication: DYSSTASIA
     Route: 048
     Dates: start: 201409, end: 201409
  3. MYSLEE [Suspect]
     Active Substance: ZOLPIDEM TARTRATE
     Indication: DROOLING
     Route: 048
     Dates: start: 201409, end: 201409
  4. MYSLEE [Suspect]
     Active Substance: ZOLPIDEM TARTRATE
     Indication: INSOMNIA
     Route: 048
     Dates: start: 201409, end: 201409
  5. MYSLEE [Suspect]
     Active Substance: ZOLPIDEM TARTRATE
     Indication: DYSSTASIA
     Route: 048
     Dates: start: 201409, end: 201409
  6. MYSLEE [Suspect]
     Active Substance: ZOLPIDEM TARTRATE
     Indication: DROOLING
     Route: 048
     Dates: start: 201409, end: 201409
  7. ANEXATE [Suspect]
     Active Substance: FLUMAZENIL
     Indication: COORDINATION ABNORMAL
     Dosage: STRENGTH-0.5 MG
     Route: 065
     Dates: start: 20140925

REACTIONS (5)
  - Coordination abnormal [Recovered/Resolved]
  - Off label use [Unknown]
  - Intentional overdose [Unknown]
  - Drooling [Recovered/Resolved]
  - Depressed level of consciousness [Recovered/Resolved]

NARRATIVE: CASE EVENT DATE: 201409
